FAERS Safety Report 24834480 (Version 2)
Quarter: 2025Q1

REPORT INFORMATION
  Report Type: Report from Study
  Country: GB (occurrence: GB)
  Receive Date: 20250113
  Receipt Date: 20250207
  Transmission Date: 20250408
  Serious: Yes (Other)
  Sender: CELLTRION
  Company Number: GB-CELLTRION INC.-2025GB000381

PATIENT

DRUGS (1)
  1. ADALIMUMAB-AATY [Suspect]
     Active Substance: ADALIMUMAB-AATY
     Indication: Rheumatoid arthritis
     Dosage: 40 MG EVERY 2 WEEKS
     Route: 058
     Dates: start: 20241213

REACTIONS (4)
  - Tooth disorder [Unknown]
  - Oral pain [Unknown]
  - Bacterial infection [Not Recovered/Not Resolved]
  - Gingivitis [Unknown]

NARRATIVE: CASE EVENT DATE: 20250106
